FAERS Safety Report 23084405 (Version 1)
Quarter: 2023Q4

REPORT INFORMATION
  Report Type: Spontaneous
  Country: CN (occurrence: CN)
  Receive Date: 20231019
  Receipt Date: 20231019
  Transmission Date: 20240110
  Serious: Yes (Other)
  Sender: FDA-Public Use
  Company Number: CN-PFIZER INC-PV202300170564

PATIENT
  Age: 37 Year
  Sex: Male
  Weight: 70 kg

DRUGS (2)
  1. VORICONAZOLE [Suspect]
     Active Substance: VORICONAZOLE
     Indication: Therapeutic procedure
     Dosage: 400 MG, 1X/DAY
     Route: 041
     Dates: start: 20230722, end: 20230722
  2. VORICONAZOLE [Suspect]
     Active Substance: VORICONAZOLE
     Indication: Antifungal treatment
     Dosage: MAINTENANCE DOSE
     Route: 041
     Dates: start: 20230723

REACTIONS (4)
  - Chloropsia [Unknown]
  - Chromatopsia [Recovering/Resolving]
  - Erythropsia [Unknown]
  - Off label use [Unknown]

NARRATIVE: CASE EVENT DATE: 20230722
